FAERS Safety Report 15295566 (Version 1)
Quarter: 2018Q3

REPORT INFORMATION
  Report Type: Spontaneous
  Country: US (occurrence: US)
  Receive Date: 20180807
  Receipt Date: 20180807
  Transmission Date: 20181010
  Serious: No
  Sender: FDA-Public Use
  Company Number: None

PATIENT
  Age: 80 Year
  Sex: Female
  Weight: 51.71 kg

DRUGS (7)
  1. CHARLOTTE^S WEB (CBD) [Suspect]
     Active Substance: CANNABIDIOL
     Indication: BACK PAIN
     Route: 061
     Dates: start: 20180720, end: 20180719
  2. GABAPENTIN. [Concomitant]
     Active Substance: GABAPENTIN
  3. SIMBRINZA [Concomitant]
     Active Substance: BRIMONIDINE TARTRATE\BRINZOLAMIDE
  4. POTASSIUM [Concomitant]
     Active Substance: POTASSIUM
  5. 81 MG ASPIRIN [Concomitant]
     Active Substance: ASPIRIN
  6. VITAMIN D [Concomitant]
     Active Substance: CHOLECALCIFEROL
  7. VIT B [Concomitant]
     Active Substance: VITAMIN B

REACTIONS (1)
  - Rash [None]

NARRATIVE: CASE EVENT DATE: 20180720
